FAERS Safety Report 12233876 (Version 4)
Quarter: 2016Q4

REPORT INFORMATION
  Report Type: Spontaneous
  Country: BR (occurrence: BR)
  Receive Date: 20160404
  Receipt Date: 20161221
  Transmission Date: 20170207
  Serious: Yes (Other)
  Sender: FDA-Public Use
  Company Number: BR-SA-2016SA064007

PATIENT
  Age: 60 Year
  Sex: Female
  Weight: 78 kg

DRUGS (5)
  1. ARAVA [Suspect]
     Active Substance: LEFLUNOMIDE
     Indication: RHEUMATOID ARTHRITIS
     Dosage: STRENGTH: 20 MG?START DATE: 8 YEARS
     Route: 048
  2. CLOPIDOGREL [Concomitant]
     Active Substance: CLOPIDOGREL BISULFATE
     Indication: CEREBROVASCULAR ACCIDENT PROPHYLAXIS
     Dosage: STARTED THIS MONTH
     Route: 048
  3. PRINZIDE [Concomitant]
     Active Substance: HYDROCHLOROTHIAZIDE\LISINOPRIL
     Indication: HYPERTENSION
     Dosage: FOR 10 YEARS
     Route: 048
  4. PREDSIM [Concomitant]
     Active Substance: PREDNISOLONE
     Indication: ANALGESIC THERAPY
     Route: 065
  5. PANTOPRAZOLE [Concomitant]
     Active Substance: PANTOPRAZOLE SODIUM
     Route: 065

REACTIONS (11)
  - Lung abscess [Recovering/Resolving]
  - Skin injury [Unknown]
  - Skin exfoliation [Unknown]
  - Dyspnoea [Unknown]
  - Chest X-ray abnormal [Unknown]
  - Breast abscess [Unknown]
  - Pain [Recovered/Resolved]
  - Lung disorder [Recovered/Resolved]
  - Purulence [Recovered/Resolved]
  - Subcutaneous abscess [Unknown]
  - Abscess [Not Recovered/Not Resolved]
